FAERS Safety Report 8556398-6 (Version None)
Quarter: 2012Q3

REPORT INFORMATION
  Report Type: 
  Country: None (occurrence: None)
  Receive Date: 20120801
  Receipt Date: 20120726
  Transmission Date: 20120928
  Serious: Yes (Hospitalization, Other)
  Sender: FDA-Public Use
  Company Number: PHHY2011US56008

PATIENT
  Sex: Female

DRUGS (12)
  1. AFINITOR [Suspect]
     Indication: ASTROCYTOMA, LOW GRADE
     Dosage: 5 MG, DAILY
     Route: 048
     Dates: start: 20110607
  2. AFINITOR [Suspect]
     Dosage: 2.5 MG, THREE TIMES A WEEK
     Route: 048
  3. DEPAKOTE [Concomitant]
  4. RISPERDAL [Concomitant]
  5. AFINITOR [Suspect]
     Dosage: 2.5 MG, DAILY
     Route: 048
  6. AFINITOR [Suspect]
     Dosage: 2.5 MG, THREE TIMES A WEEK
     Route: 048
     Dates: start: 20120102, end: 20120205
  7. THORAZINE [Concomitant]
  8. BACTRIM [Concomitant]
  9. AFINITOR [Suspect]
     Dosage: 2.5 MG, THREE TIMES A WEEK
     Route: 048
     Dates: start: 20110722
  10. AFINITOR [Suspect]
     Dosage: 2.5 MG EVERY OTHER DAY
     Route: 048
     Dates: start: 20120327, end: 20120529
  11. ALBUTEROL [Concomitant]
  12. TRAZODONE HYDROCHLORIDE [Concomitant]

REACTIONS (7)
  - RASH [None]
  - UPPER RESPIRATORY TRACT INFECTION [None]
  - PYREXIA [None]
  - ABNORMAL BEHAVIOUR [None]
  - PNEUMONIA [None]
  - INSOMNIA [None]
  - EAR INFECTION [None]
